FAERS Safety Report 15841433 (Version 6)
Quarter: 2021Q1

REPORT INFORMATION
  Report Type: Other
  Country: US (occurrence: US)
  Receive Date: 20190118
  Receipt Date: 20210313
  Transmission Date: 20210419
  Serious: Yes (Other)
  Sender: FDA-Public Use
  Company Number: US-ROCHE-2153814

PATIENT
  Sex: Female

DRUGS (20)
  1. LYRICA [Concomitant]
     Active Substance: PREGABALIN
  2. ADDERALL [Concomitant]
     Active Substance: AMPHETAMINE ASPARTATE\AMPHETAMINE SULFATE\DEXTROAMPHETAMINE SACCHARATE\DEXTROAMPHETAMINE SULFATE
  3. CHLORHEXIDINE [Concomitant]
     Active Substance: CHLORHEXIDINE
  4. LIDOCAINE VISCOUS [Concomitant]
     Active Substance: LIDOCAINE HYDROCHLORIDE
  5. OCREVUS [Suspect]
     Active Substance: OCRELIZUMAB
     Indication: MULTIPLE SCLEROSIS
     Route: 065
     Dates: start: 20180717
  6. IBUPROFEN. [Concomitant]
     Active Substance: IBUPROFEN
  7. LIRAGLUTIDE [Concomitant]
     Active Substance: LIRAGLUTIDE
  8. CARIPRAZINE [Concomitant]
     Active Substance: CARIPRAZINE
  9. OCREVUS [Suspect]
     Active Substance: OCRELIZUMAB
     Route: 042
  10. BENADRYL [Concomitant]
     Active Substance: DIPHENHYDRAMINE HYDROCHLORIDE
     Dosage: ONGOING: UNKNOWN
     Dates: start: 20180706
  11. VITAMIN D3 [Concomitant]
     Active Substance: CHOLECALCIFEROL
  12. VYVANSE [Concomitant]
     Active Substance: LISDEXAMFETAMINE DIMESYLATE
  13. LISINOPRIL. [Concomitant]
     Active Substance: LISINOPRIL
  14. TRAMADOL. [Concomitant]
     Active Substance: TRAMADOL
  15. TOPIRAMATE. [Concomitant]
     Active Substance: TOPIRAMATE
  16. ELETRIPTAN. [Concomitant]
     Active Substance: ELETRIPTAN
  17. OXCARBAZEPINE. [Concomitant]
     Active Substance: OXCARBAZEPINE
  18. HYDROCODONE [Concomitant]
     Active Substance: HYDROCODONE
  19. DULOXETINE HCL [Concomitant]
     Active Substance: DULOXETINE HYDROCHLORIDE
  20. OCREVUS [Suspect]
     Active Substance: OCRELIZUMAB
     Indication: PRIMARY PROGRESSIVE MULTIPLE SCLEROSIS
     Dosage: ONGOING: UNKNOWN?DATE OF TREATMENT: 06/JUL/2018, 17/JUL/2018, 17/JAN/2019, 17/JUL/2019, 09/JAN/2020,
     Route: 065
     Dates: start: 20180703

REACTIONS (10)
  - Hypoaesthesia [Not Recovered/Not Resolved]
  - Cough [Unknown]
  - Ageusia [Unknown]
  - Fatigue [Not Recovered/Not Resolved]
  - Neuralgia [Not Recovered/Not Resolved]
  - Sciatica [Unknown]
  - Intracranial pressure increased [Unknown]
  - Hyperaesthesia [Unknown]
  - Oral discomfort [Not Recovered/Not Resolved]
  - Drug hypersensitivity [Unknown]
